FAERS Safety Report 6737915 (Version 21)
Quarter: 2013Q4

REPORT INFORMATION
  Report Type: Spontaneous
  Country: US (occurrence: US)
  Receive Date: 20080827
  Receipt Date: 20131219
  Transmission Date: 20140711
  Serious: Yes (Death, Other)
  Sender: FDA-Public Use
  Company Number: PHEH2008US07358

PATIENT
  Age: 66 Year
  Sex: Male

DRUGS (38)
  1. ZOMETA [Suspect]
     Dosage: 4 MG, QMO
     Route: 042
     Dates: start: 20020312
  2. AMOXICILLIN [Concomitant]
     Dosage: 500 MG
     Dates: start: 200811
  3. NEOMYCIN SULFATE/POLYMYXIN B SULFATE [Concomitant]
     Dosage: 1 %,
     Route: 061
     Dates: start: 200807
  4. MORPHINE SULFATE [Concomitant]
     Dosage: 15 MG,
     Dates: start: 200803
  5. PENICILLIN V POTASSIUM [Concomitant]
     Dosage: 500 MG,
     Dates: start: 200708
  6. FINASTERIDE [Concomitant]
     Dosage: 5 MG,
     Dates: start: 200609
  7. FERROUS SULFATE [Concomitant]
     Dosage: 325 MG
  8. PROSCAR [Concomitant]
     Dosage: 5 MG,
     Dates: start: 200608
  9. ACYCLOVIR [Concomitant]
     Dosage: 400 MG,
     Dates: start: 200607
  10. CIPROFLOXACIN [Concomitant]
     Dosage: 750 MG,
     Dates: start: 200606
  11. GABAPENTIN [Concomitant]
     Dosage: 300 MG,
     Dates: start: 200604
  12. WARFARIN SODIUM [Concomitant]
     Dates: start: 200602
  13. CYCLOBENZAPRINE HYDROCHLORIDE [Concomitant]
     Dosage: 10 MG,
     Dates: start: 200511
  14. PROCHLORPERAZINE MALEATE [Concomitant]
     Dosage: 10 MG,
     Dates: start: 200509
  15. THALOMID [Concomitant]
     Dosage: 50 MG,
     Dates: start: 200507
  16. OXYCODONE [Concomitant]
     Dosage: 10 MG,
     Dates: start: 200507
  17. CLINDAMYCIN HYDROCHLORIDE [Concomitant]
     Dosage: 300 MG
     Dates: start: 200503
  18. OXYCONTIN [Concomitant]
     Dosage: 10 MG,
     Dates: start: 200502
  19. ROXICET [Concomitant]
     Dates: start: 200502
  20. NORTRIPTYLINE HYDROCHLORIDE [Concomitant]
     Dosage: 25 MG,
     Dates: start: 200502
  21. RADIATION THERAPY [Concomitant]
  22. VINCRISTINE [Concomitant]
  23. ADRIAMYCIN [Concomitant]
  24. DECADRON                                /CAN/ [Concomitant]
  25. NORTRIPTYLINE [Concomitant]
  26. VANCOMYCIN [Concomitant]
  27. MELPHALAN [Concomitant]
     Dosage: 420 MG,
     Route: 042
     Dates: start: 20020817
  28. FLUCONAZOLE [Concomitant]
     Dates: start: 20020815
  29. CYTOXAN [Concomitant]
     Dates: start: 20020810
  30. ETOPOSIDE [Concomitant]
     Dosage: 420 MG,
     Route: 042
     Dates: start: 20020729
  31. CORTICOSTEROIDS [Concomitant]
  32. NEURONTIN [Concomitant]
     Dosage: 800 MG, TID
  33. IBUPROFEN [Concomitant]
  34. ELAVIL [Concomitant]
     Dosage: 25 MG, QD
  35. RANITIDINE [Concomitant]
     Dosage: 150 MG, BID
  36. ZOLOFT (SERTRALINE HYDROCHLORIDE) [Concomitant]
  37. SONATA [Concomitant]
  38. TESTOSTERONE [Concomitant]

REACTIONS (72)
  - Death [Fatal]
  - Osteonecrosis of jaw [Unknown]
  - General physical health deterioration [Unknown]
  - Pain [Unknown]
  - Anxiety [Unknown]
  - Denture wearer [Unknown]
  - Gingival bleeding [Unknown]
  - Dysgeusia [Unknown]
  - Loose tooth [Unknown]
  - Osteomyelitis [Unknown]
  - Pain in jaw [Unknown]
  - Deep vein thrombosis [Unknown]
  - Compression fracture [Unknown]
  - Loss of consciousness [Unknown]
  - Osteoarthritis [Unknown]
  - Rib fracture [Unknown]
  - Neuralgia [Unknown]
  - Bursitis [Unknown]
  - Weight decreased [Unknown]
  - Decreased appetite [Unknown]
  - Insomnia [Unknown]
  - Back pain [Unknown]
  - Periodontal disease [Unknown]
  - Tooth erosion [Unknown]
  - Somnolence [Unknown]
  - Prostatism [Unknown]
  - Arthritis [Unknown]
  - Musculoskeletal stiffness [Unknown]
  - Fatigue [Unknown]
  - Paraesthesia [Unknown]
  - Hypoaesthesia [Unknown]
  - Neuropathy peripheral [Unknown]
  - Hair growth abnormal [Unknown]
  - Blood immunoglobulin A increased [Unknown]
  - Blood immunoglobulin G increased [Unknown]
  - Flushing [Unknown]
  - Red blood cell sedimentation rate increased [Unknown]
  - Herpes zoster [Unknown]
  - Respiratory tract infection [Recovering/Resolving]
  - Cough [Unknown]
  - Myalgia [Unknown]
  - Influenza like illness [Recovering/Resolving]
  - Hypertonic bladder [Unknown]
  - Stomatitis [Unknown]
  - Nasal discomfort [Unknown]
  - Actinomycosis [Unknown]
  - Plasma cell myeloma recurrent [Unknown]
  - Intervertebral disc degeneration [Unknown]
  - Intervertebral disc protrusion [Unknown]
  - Spinal cord compression [Unknown]
  - Hypertension [Unknown]
  - Bone disorder [Unknown]
  - Atelectasis [Unknown]
  - Dyspnoea [Unknown]
  - Mouth haemorrhage [Recovered/Resolved]
  - Dysuria [Unknown]
  - Haemorrhage [Unknown]
  - Chronic obstructive pulmonary disease [Unknown]
  - Urinary tract infection [Unknown]
  - Metastases to central nervous system [Unknown]
  - Oral discomfort [Unknown]
  - Metastasis [Unknown]
  - Haemoptysis [Unknown]
  - Anaemia [Unknown]
  - Bone marrow disorder [Unknown]
  - Neoplasm malignant [Unknown]
  - Confusional state [Unknown]
  - Chest pain [Unknown]
  - Nausea [Unknown]
  - Headache [Unknown]
  - Abdominal pain upper [Unknown]
  - Lethargy [Unknown]
